FAERS Safety Report 11177482 (Version 1)
Quarter: 2015Q2

REPORT INFORMATION
  Report Type: Spontaneous
  Country: US (occurrence: None)
  Receive Date: 20150608
  Receipt Date: 20150608
  Transmission Date: 20150821
  Serious: No
  Sender: FDA-Public Use
  Company Number: None

PATIENT
  Age: 58 Year
  Sex: Female
  Weight: 53.52 kg

DRUGS (6)
  1. LIALDA [Concomitant]
     Active Substance: MESALAMINE
  2. NORVASC [Concomitant]
     Active Substance: AMLODIPINE BESYLATE
  3. VIACTIVE [Concomitant]
  4. MECLIZINE [Suspect]
     Active Substance: MECLIZINE\MECLIZINE HYDROCHLORIDE
     Indication: VERTIGO
     Route: 048
  5. ATIVAN [Concomitant]
     Active Substance: LORAZEPAM
  6. CVS GUMMY VITAMINS [Concomitant]

REACTIONS (5)
  - Thinking abnormal [None]
  - Fatigue [None]
  - Somnolence [None]
  - Asthenia [None]
  - Dizziness [None]

NARRATIVE: CASE EVENT DATE: 20150604
